FAERS Safety Report 26057080 (Version 1)
Quarter: 2025Q4

REPORT INFORMATION
  Report Type: Spontaneous
  Country: US (occurrence: US)
  Receive Date: 20251118
  Receipt Date: 20251118
  Transmission Date: 20260117
  Serious: No
  Sender: AMNEAL
  Company Number: US-AMNEAL PHARMACEUTICALS-2025-AMRX-02075

PATIENT
  Age: 17 Year
  Sex: Female
  Weight: 56.689 kg

DRUGS (1)
  1. ISOTRETINOIN [Suspect]
     Active Substance: ISOTRETINOIN
     Indication: Product used for unknown indication
     Dosage: 40 MG, 01 CAPSULES, DAILY
     Route: 048
     Dates: start: 20250525, end: 20250528

REACTIONS (2)
  - Vision blurred [Not Recovered/Not Resolved]
  - Headache [Not Recovered/Not Resolved]

NARRATIVE: CASE EVENT DATE: 20250528
